FAERS Safety Report 4956372-2 (Version None)
Quarter: 2006Q1

REPORT INFORMATION
  Report Type: 
  Country: None (occurrence: None)
  Receive Date: 20060323
  Receipt Date: 20060310
  Transmission Date: 20060701
  Serious: Yes (Hospitalization)
  Sender: FDA-Public Use
  Company Number: 2006036510

PATIENT

DRUGS (1)
  1. ZOLOFT [Suspect]
     Indication: MAJOR DEPRESSION

REACTIONS (1)
  - DRUG RESISTANCE [None]
